FAERS Safety Report 19083291 (Version 1)
Quarter: 2021Q2

REPORT INFORMATION
  Report Type: Spontaneous
  Country: JP (occurrence: JP)
  Receive Date: 20210401
  Receipt Date: 20210401
  Transmission Date: 20210717
  Serious: Yes (Other)
  Sender: FDA-Public Use
  Company Number: JP-PFIZER INC-2021312135

PATIENT
  Sex: Female

DRUGS (3)
  1. CARDENALIN [Suspect]
     Active Substance: DOXAZOSIN MESYLATE
     Indication: HYPERTENSION
     Dosage: UNK
     Route: 048
  2. TELMISARTAN. [Suspect]
     Active Substance: TELMISARTAN
     Dosage: 40 MG
  3. TELMISARTAN. [Suspect]
     Active Substance: TELMISARTAN
     Indication: HYPERTENSION
     Dosage: 10 MG

REACTIONS (11)
  - Fear [Unknown]
  - Anxiety [Unknown]
  - Feeling abnormal [Unknown]
  - Suicidal ideation [Unknown]
  - Impaired work ability [Unknown]
  - Malaise [Unknown]
  - Depression [Unknown]
  - Amnesia [Unknown]
  - Disturbance in attention [Unknown]
  - Hypoglycaemia [Unknown]
  - Amenorrhoea [Unknown]
